FAERS Safety Report 6645730-6 (Version None)
Quarter: 2010Q1

REPORT INFORMATION
  Report Type: 
  Country: None (occurrence: None)
  Receive Date: 20100323
  Receipt Date: 20100315
  Transmission Date: 20100710
  Serious: Yes (Hospitalization)
  Sender: FDA-Public Use
  Company Number: CHPA2010US04771

PATIENT
  Sex: Female

DRUGS (1)
  1. THERAFLU DAYTIME SEVERE COLD + COUGH [Suspect]
     Dosage: UNK,UNK
     Route: 048

REACTIONS (2)
  - MALAISE [None]
  - PNEUMONIA [None]
